FAERS Safety Report 8146985 (Version 3)
Quarter: 2012Q4

REPORT INFORMATION
  Report Type: 
  Country: US (occurrence: US)
  Receive Date: 20110921
  Receipt Date: 20120927
  Transmission Date: 20130627
  Serious: Yes (Hospitalization)
  Sender: FDA-Public Use
  Company Number: US-ASTRAZENECA-2011SE54955

PATIENT
  Age: 76 Year
  Sex: Female

DRUGS (3)
  1. SYMBICORT PMDI [Suspect]
     Dosage: UNKNOWN
     Route: 055
  2. NEXIUM [Suspect]
     Route: 048
  3. NEXIUM [Suspect]
     Route: 048

REACTIONS (10)
  - Sciatica [Unknown]
  - Barrett^s oesophagus [Unknown]
  - Asthma [Unknown]
  - Sinusitis [Unknown]
  - Increased upper airway secretion [Unknown]
  - Respiratory tract congestion [Unknown]
  - Cough [Unknown]
  - Off label use [Unknown]
  - Intentional drug misuse [Unknown]
  - Drug dose omission [Unknown]
